FAERS Safety Report 18226887 (Version 1)
Quarter: 2020Q3

REPORT INFORMATION
  Report Type: Spontaneous
  Country: FR (occurrence: FR)
  Receive Date: 20200903
  Receipt Date: 20200903
  Transmission Date: 20201103
  Serious: Yes (Hospitalization)
  Sender: FDA-Public Use
  Company Number: FR-TEVA-2020-FR-1822161

PATIENT
  Age: 67 Year
  Sex: Male
  Weight: 81 kg

DRUGS (6)
  1. ETOPOSIDE TEVA [Suspect]
     Active Substance: ETOPOSIDE
     Indication: BRONCHIAL CARCINOMA
     Dosage: 160 MG
     Route: 041
     Dates: start: 20171227, end: 20171229
  2. EMEND 125 MG, GELULE ET EMEND 80 MG, GELULE [Concomitant]
  3. EMEND 125 MG, GELULE ET EMEND 80 MG, GELULE [Concomitant]
  4. CARBOPLATINE ACCORD [Suspect]
     Active Substance: CARBOPLATIN
     Indication: BRONCHIAL CARCINOMA
     Dosage: 560 MG
     Route: 041
     Dates: start: 20171227, end: 20171227
  5. METHYLPREDNISOLONE MYLAN [Concomitant]
     Active Substance: METHYLPREDNISOLONE
  6. ONDANSETRON ACCORD [Concomitant]
     Active Substance: ONDANSETRON

REACTIONS (1)
  - Febrile bone marrow aplasia [Recovered/Resolved]

NARRATIVE: CASE EVENT DATE: 20180109
